FAERS Safety Report 14311489 (Version 1)
Quarter: 2017Q4

REPORT INFORMATION
  Report Type: Spontaneous
  Country: US (occurrence: US)
  Receive Date: 20171221
  Receipt Date: 20171221
  Transmission Date: 20180321
  Serious: No
  Sender: FDA-Public Use
  Company Number: US-TEVA-748433ACC

PATIENT
  Age: 61 Year
  Sex: Male

DRUGS (6)
  1. CENTRUM SILVER MEN^S 50+ [Suspect]
     Active Substance: MINERALS\VITAMINS
     Indication: MINERAL SUPPLEMENTATION
  2. NAPROXEN EC [Suspect]
     Active Substance: NAPROXEN
     Indication: ANKYLOSING SPONDYLITIS
     Dosage: 1000 MILLIGRAM DAILY;
     Route: 048
     Dates: start: 20141103
  3. LOSARTAN POTASSIUM. [Concomitant]
     Active Substance: LOSARTAN POTASSIUM
     Indication: HYPERTENSION
     Dosage: 1.5 DOSAGE FORMS DAILY;
     Route: 048
  4. AMLODIPINE [Concomitant]
     Active Substance: AMLODIPINE BESYLATE
     Dates: start: 201501
  5. CENTRUM SILVER MEN^S 50+ [Suspect]
     Active Substance: MINERALS\VITAMINS
     Indication: VITAMIN SUPPLEMENTATION
     Dosage: 1 DOSAGE FORMS DAILY;
     Route: 048
     Dates: start: 20170126
  6. LISINOPRIL. [Concomitant]
     Active Substance: LISINOPRIL
     Dates: start: 20150125

REACTIONS (1)
  - Blood pressure increased [Not Recovered/Not Resolved]

NARRATIVE: CASE EVENT DATE: 20170127
